FAERS Safety Report 21414286 (Version 7)
Quarter: 2023Q1

REPORT INFORMATION
  Report Type: Report from Study
  Country: US (occurrence: US)
  Receive Date: 20221006
  Receipt Date: 20230313
  Transmission Date: 20230417
  Serious: Yes (Disabling, Other)
  Sender: FDA-Public Use
  Company Number: US-ABBVIE-22K-163-4442510-00

PATIENT
  Age: 68 Year
  Sex: Female
  Weight: 73.028 kg

DRUGS (21)
  1. HUMIRA [Suspect]
     Active Substance: ADALIMUMAB
     Indication: Rheumatoid arthritis
     Route: 058
  2. HUMIRA [Suspect]
     Active Substance: ADALIMUMAB
     Route: 058
  3. HUMIRA [Suspect]
     Active Substance: ADALIMUMAB
     Route: 058
  4. HUMIRA [Suspect]
     Active Substance: ADALIMUMAB
     Route: 058
     Dates: end: 20221010
  5. HUMIRA [Suspect]
     Active Substance: ADALIMUMAB
     Dosage: LAST ADMIN DATE:2022
     Route: 058
     Dates: start: 20221123
  6. HUMIRA [Suspect]
     Active Substance: ADALIMUMAB
     Dosage: LAST ADMIN DATE:2022
     Route: 058
     Dates: start: 20220403
  7. HUMIRA [Suspect]
     Active Substance: ADALIMUMAB
     Route: 058
  8. CELEBREX [Concomitant]
     Active Substance: CELECOXIB
     Indication: Arthralgia
  9. METOLAZONE [Concomitant]
     Active Substance: METOLAZONE
     Indication: Myositis
     Dosage: PILL?FORM STRENGTH: 800 MILLIGRAM
     Route: 048
  10. ROSUVASTATIN [Concomitant]
     Active Substance: ROSUVASTATIN
     Indication: Blood cholesterol abnormal
     Dosage: PILL?FORM STRENGTH: 10 MILLIGRAM
  11. MODERNA COVID-19 VACCINE [Concomitant]
     Active Substance: ELASOMERAN
     Indication: COVID-19 immunisation
     Dosage: FIRST DOSE, ONCE
     Route: 030
     Dates: start: 20210226, end: 20210226
  12. MODERNA COVID-19 VACCINE [Concomitant]
     Active Substance: ELASOMERAN
     Indication: COVID-19 immunisation
     Dosage: SECOND DOSE, ONCE
     Route: 030
     Dates: start: 20210401, end: 20210401
  13. MODERNA COVID-19 VACCINE [Concomitant]
     Active Substance: ELASOMERAN
     Indication: COVID-19 immunisation
     Dosage: BOOSTER DOSE, ONCE
     Route: 030
     Dates: start: 20211108, end: 20211108
  14. TRIAMTERENE [Concomitant]
     Active Substance: TRIAMTERENE
     Indication: Blood pressure management
     Dosage: PILL?FORM STRENGTH: 37.5 MILLIGRAM
  15. METFORMIN [Concomitant]
     Active Substance: METFORMIN HYDROCHLORIDE
     Indication: Type 2 diabetes mellitus
     Dosage: PILL?FORM STRENGTH: 500 MILLIGRAM
  16. AMITRIPTYLINE [Concomitant]
     Active Substance: AMITRIPTYLINE
     Indication: Sleep disorder therapy
  17. FOLIC ACID [Concomitant]
     Active Substance: FOLIC ACID
     Indication: Product used for unknown indication
  18. METHOTREXATE [Concomitant]
     Active Substance: METHOTREXATE
     Indication: Arthralgia
  19. LEFLUNOMIDE [Concomitant]
     Active Substance: LEFLUNOMIDE
     Indication: Arthralgia
  20. CELECOXIB [Concomitant]
     Active Substance: CELECOXIB
     Indication: Myalgia
     Dosage: PILL?FORM STRENGTH: 200 MILLIGRAM
     Route: 048
  21. LOW DOSE ASPIRIN [Concomitant]
     Active Substance: ASPIRIN
     Indication: Supplementation therapy
     Dosage: FORM STRENGTH: 81 MILLIGRAM

REACTIONS (18)
  - Carpal tunnel syndrome [Recovered/Resolved]
  - Dysstasia [Unknown]
  - Pain in extremity [Recovering/Resolving]
  - Pain [Not Recovered/Not Resolved]
  - Musculoskeletal stiffness [Unknown]
  - Limb mass [Not Recovered/Not Resolved]
  - Limb mass [Recovered/Resolved]
  - Carpal tunnel syndrome [Unknown]
  - Spinal column injury [Recovered/Resolved]
  - Joint lock [Unknown]
  - Arthritis [Not Recovered/Not Resolved]
  - Ligament sprain [Unknown]
  - Head injury [Unknown]
  - Surgery [Unknown]
  - Fall [Unknown]
  - Headache [Unknown]
  - Loss of personal independence in daily activities [Not Recovered/Not Resolved]
  - Joint noise [Recovered/Resolved]

NARRATIVE: CASE EVENT DATE: 20220715
